FAERS Safety Report 19459311 (Version 1)
Quarter: 2021Q2

REPORT INFORMATION
  Report Type: Spontaneous
  Country: SK (occurrence: SK)
  Receive Date: 20210624
  Receipt Date: 20210624
  Transmission Date: 20210717
  Serious: Yes (Other)
  Sender: FDA-Public Use
  Company Number: SK-TAKEDA-2021TUS039249

PATIENT
  Age: 7 Year

DRUGS (8)
  1. FACTOR VIII (ANTIHAEMOPHILIC FACTOR) [Concomitant]
     Active Substance: ANTIHEMOPHILIC FACTOR HUMAN
     Indication: HAEMOPHILIA
     Dosage: UNK
  2. EMICIZUMAB. [Concomitant]
     Active Substance: EMICIZUMAB
     Indication: FACTOR VIII INHIBITION
  3. DEXAMETHASONE. [Concomitant]
     Active Substance: DEXAMETHASONE
     Indication: HAEMOPHILIA
     Dosage: UNK
  4. RITUXIMAB. [Concomitant]
     Active Substance: RITUXIMAB
     Indication: HAEMOPHILIA
     Dosage: UNK
  5. FEIBA NF [Suspect]
     Active Substance: ANTI-INHIBITOR COAGULANT COMPLEX
     Indication: HAEMOPHILIA
     Dosage: 50 INTERNATIONAL UNIT/KILOGRAM, BID
     Route: 065
  6. FACTOR VII [Concomitant]
     Active Substance: COAGULATION FACTOR VII HUMAN
     Indication: HAEMOPHILIA
     Dosage: UNK UNK, QD
  7. EMICIZUMAB. [Concomitant]
     Active Substance: EMICIZUMAB
     Indication: HAEMOPHILIA
     Dosage: 1.5 MILLIGRAM/KILOGRAM, 1/WEEK
  8. MYCOPHENOLATE MOFETIL. [Concomitant]
     Active Substance: MYCOPHENOLATE MOFETIL
     Indication: HAEMOPHILIA
     Dosage: UNK

REACTIONS (1)
  - Drug ineffective [Unknown]
